FAERS Safety Report 6173820-3 (Version None)
Quarter: 2009Q2

REPORT INFORMATION
  Report Type: 
  Country: None (occurrence: None)
  Receive Date: 20090429
  Receipt Date: 20090429
  Transmission Date: 20091009
  Serious: Yes (Other)
  Sender: FDA-Public Use
  Company Number: None

PATIENT
  Sex: Female
  Weight: 10.3 kg

DRUGS (1)
  1. DEXMEDETOMIDINE [Suspect]
     Indication: SEDATIVE THERAPY
     Dates: start: 20090422, end: 20090423

REACTIONS (9)
  - ATRIAL FIBRILLATION [None]
  - ATRIOVENTRICULAR BLOCK [None]
  - BRADYARRHYTHMIA [None]
  - CARDIAC ARREST [None]
  - HYPERTENSION [None]
  - HYPOTENSION [None]
  - SUPRAVENTRICULAR TACHYCARDIA [None]
  - TACHYCARDIA [None]
  - VENTRICULAR DYSFUNCTION [None]
